FAERS Safety Report 6619348-5 (Version None)
Quarter: 2010Q1

REPORT INFORMATION
  Report Type: 
  Country: None (occurrence: None)
  Receive Date: 20100308
  Receipt Date: 20090713
  Transmission Date: 20100710
  Serious: No
  Sender: FDA-Public Use
  Company Number: US-TYCO HEALTHCARE/MALLINCKRODT-T200901369

PATIENT
  Sex: Male

DRUGS (2)
  1. RESTORIL [Suspect]
     Dosage: UNK
     Dates: end: 20090701
  2. ALPRAZOLAM [Suspect]
     Dosage: 1 MG,HS
     Dates: start: 20090701

REACTIONS (2)
  - SOMNAMBULISM [None]
  - WITHDRAWAL SYNDROME [None]
